FAERS Safety Report 21886603 (Version 1)
Quarter: 2023Q1

REPORT INFORMATION
  Report Type: Spontaneous
  Country: JP (occurrence: JP)
  Receive Date: 20230119
  Receipt Date: 20230119
  Transmission Date: 20230418
  Serious: Yes (Hospitalization, Other)
  Sender: FDA-Public Use
  Company Number: JP-TASMAN PHARMA, INC.-2023TSM00029

PATIENT
  Age: 29 Year
  Sex: Male

DRUGS (1)
  1. CLOZAPINE [Suspect]
     Active Substance: CLOZAPINE
     Indication: Schizoaffective disorder
     Dosage: 225 MG, 1X/DAY

REACTIONS (5)
  - Catatonia [Unknown]
  - Rhabdomyolysis [Unknown]
  - Cardiac failure [Unknown]
  - Cardiomyopathy [Unknown]
  - Hypertension [Unknown]
